FAERS Safety Report 8882110 (Version 1)
Quarter: 2012Q4

REPORT INFORMATION
  Report Type: Report from Study
  Country: CA (occurrence: CA)
  Receive Date: 20121105
  Receipt Date: 20121105
  Transmission Date: 20130627
  Serious: No
  Sender: FDA-Public Use
  Company Number: CA-JNJFOC-20121017421

PATIENT
  Age: 25 Year
  Sex: Male
  Weight: 90.3 kg

DRUGS (2)
  1. REMICADE [Suspect]
     Indication: CROHN^S DISEASE
     Route: 042
     Dates: start: 20120209
  2. IMURAN [Concomitant]
     Route: 048

REACTIONS (1)
  - Herpes zoster [Recovered/Resolved]
